FAERS Safety Report 6393889-0 (Version None)
Quarter: 2009Q4

REPORT INFORMATION
  Report Type: 
  Country: None (occurrence: None)
  Receive Date: 20091008
  Receipt Date: 20090929
  Transmission Date: 20100525
  Serious: Yes (Hospitalization)
  Sender: FDA-Public Use
  Company Number: US-AVENTIS-200918131US

PATIENT
  Sex: Male
  Weight: 90.9 kg

DRUGS (8)
  1. LANTUS [Suspect]
     Dosage: DOSE: 113 TO 112 TWICW EACH DAY TOTAL=225 UNITS
     Route: 058
     Dates: start: 20080501, end: 20080501
  2. LANTUS [Suspect]
     Dosage: DOSE: UNK
     Route: 058
     Dates: start: 20090803
  3. OPTICLIK (INSULIN INJECTION PEN) [Suspect]
     Dates: start: 20080501
  4. METFORMIN [Suspect]
     Dosage: DOSE: 2500 MG DAILY
     Route: 048
     Dates: start: 20070901, end: 20090501
  5. VYTORIN [Concomitant]
     Dosage: DOSE: 10/40
     Route: 048
     Dates: start: 20080501
  6. TRICOR [Concomitant]
     Route: 048
     Dates: start: 20080501
  7. CLONAZEPAM [Concomitant]
     Route: 048
     Dates: start: 20020101
  8. SEROQUEL [Concomitant]
     Dosage: DOSE: 200 MG 2 AND ONE HALF TABLETS
     Route: 048
     Dates: start: 20020101

REACTIONS (3)
  - BLOOD GLUCOSE INCREASED [None]
  - PANCREATITIS [None]
  - VISION BLURRED [None]
